FAERS Safety Report 19529009 (Version 2)
Quarter: 2021Q3

REPORT INFORMATION
  Report Type: Spontaneous
  Country: US (occurrence: US)
  Receive Date: 20210713
  Receipt Date: 20210812
  Transmission Date: 20211014
  Serious: Yes (Other)
  Sender: FDA-Public Use
  Company Number: US-MYOVANT SCIENCES GMBH-2021MYSCI0600043

PATIENT
  Age: 72 Year
  Sex: Male

DRUGS (3)
  1. ORGOVYX [Suspect]
     Active Substance: RELUGOLIX
     Indication: PROSTATE CANCER
     Dosage: 120 MILLIGRAM, QD
     Route: 048
     Dates: start: 20210322, end: 20210703
  2. SUCRALFATE. [Concomitant]
     Active Substance: SUCRALFATE
     Indication: PRODUCT USED FOR UNKNOWN INDICATION
     Route: 065
  3. ORGOVYX [Suspect]
     Active Substance: RELUGOLIX
     Dosage: 120 MILLIGRAM, QD
     Route: 048

REACTIONS (13)
  - Fatigue [Not Recovered/Not Resolved]
  - Anxiety [Unknown]
  - Weight decreased [Unknown]
  - Swelling [Recovered/Resolved]
  - Hot flush [Unknown]
  - Oropharyngeal pain [Not Recovered/Not Resolved]
  - Dizziness [Not Recovered/Not Resolved]
  - SARS-CoV-2 test positive [Unknown]
  - Tongue discolouration [Unknown]
  - Infection [Unknown]
  - Radiation injury [Unknown]
  - Pneumonia [Unknown]
  - Tetanus [Unknown]

NARRATIVE: CASE EVENT DATE: 202107
